FAERS Safety Report 10013841 (Version 1)
Quarter: 2014Q1

REPORT INFORMATION
  Report Type: Spontaneous
  Country: US (occurrence: US)
  Receive Date: 20140316
  Receipt Date: 20140316
  Transmission Date: 20141002
  Serious: No
  Sender: FDA-Public Use
  Company Number: US-009507513-1403USA006874

PATIENT
  Sex: Female

DRUGS (3)
  1. JANUMET [Suspect]
     Indication: DIABETES MELLITUS
     Dosage: 500 MG, BID
     Route: 048
     Dates: start: 2012
  2. JANUMET [Suspect]
     Dosage: 1000
     Dates: start: 201402
  3. LISINOPRIL [Concomitant]
     Dosage: UNK

REACTIONS (1)
  - Blood glucose increased [Recovered/Resolved]
